FAERS Safety Report 20757554 (Version 2)
Quarter: 2022Q2

REPORT INFORMATION
  Report Type: Spontaneous
  Country: HR (occurrence: HR)
  Receive Date: 20220427
  Receipt Date: 20220621
  Transmission Date: 20220720
  Serious: Yes (Other)
  Sender: FDA-Public Use
  Company Number: None

PATIENT
  Age: 25 Year
  Sex: Male

DRUGS (2)
  1. XANAX [Suspect]
     Active Substance: ALPRAZOLAM
     Dosage: 3 MG, 1X/DAY
     Route: 048
     Dates: start: 20220302, end: 20220302
  2. QUETIAPINE FUMARATE [Suspect]
     Active Substance: QUETIAPINE FUMARATE
     Dosage: 750 MG, 1X/DAY
     Dates: start: 20220302, end: 20220302

REACTIONS (4)
  - Intentional overdose [Unknown]
  - Somnolence [Unknown]
  - Suicide attempt [Unknown]
  - Bradykinesia [Unknown]

NARRATIVE: CASE EVENT DATE: 20220302
